FAERS Safety Report 14927269 (Version 1)
Quarter: 2018Q2

REPORT INFORMATION
  Report Type: Spontaneous
  Country: US (occurrence: US)
  Receive Date: 20180523
  Receipt Date: 20180523
  Transmission Date: 20180711
  Serious: No
  Sender: FDA-Public Use
  Company Number: US-PFIZER INC-2018209287

PATIENT
  Age: 65 Year
  Sex: Female
  Weight: 68.4 kg

DRUGS (1)
  1. ADVIL [Suspect]
     Active Substance: IBUPROFEN
     Indication: ARTHRALGIA
     Dosage: 400 MG, UNK (200MG TABLETS TWO TABLETS BY MOUTH FOR A TOTAL OF TWO DOSES)
     Route: 048

REACTIONS (7)
  - Nausea [Not Recovered/Not Resolved]
  - Lip dry [Not Recovered/Not Resolved]
  - Nasal dryness [Not Recovered/Not Resolved]
  - Blood pressure increased [Not Recovered/Not Resolved]
  - Dysgeusia [Not Recovered/Not Resolved]
  - Dry mouth [Not Recovered/Not Resolved]
  - Paraesthesia [Not Recovered/Not Resolved]

NARRATIVE: CASE EVENT DATE: 20180518
